FAERS Safety Report 9395584 (Version 1)
Quarter: 2013Q3

REPORT INFORMATION
  Report Type: Spontaneous
  Country: MX (occurrence: MX)
  Receive Date: 20130711
  Receipt Date: 20130711
  Transmission Date: 20140515
  Serious: Yes (Death)
  Sender: FDA-Public Use
  Company Number: PHHY2013MX072964

PATIENT
  Age: 79 Year
  Sex: Male

DRUGS (1)
  1. OMNITROPE [Suspect]
     Dosage: 1 MG, DAILY
     Dates: start: 20110608

REACTIONS (1)
  - Death [Fatal]
